FAERS Safety Report 8442745-2 (Version None)
Quarter: 2012Q2

REPORT INFORMATION
  Report Type: 
  Country: None (occurrence: None)
  Receive Date: 20120615
  Receipt Date: 20120607
  Transmission Date: 20120825
  Serious: Yes (Other)
  Sender: FDA-Public Use
  Company Number: IE-ALLERGAN-1208346US

PATIENT
  Age: 50 Year
  Sex: Female

DRUGS (4)
  1. TROSPIUM CHLORIDE [Suspect]
     Indication: URINARY INCONTINENCE
     Dosage: 20 MG, QD
     Route: 048
     Dates: start: 20120504, end: 20120511
  2. AMOXICILLIN [Concomitant]
     Indication: RESPIRATORY TRACT INFECTION
     Dosage: 250 MG, UNK
  3. EUPUTEX [Concomitant]
     Indication: PRODUCT USED FOR UNKNOWN INDICATION
     Dosage: 250 ML, UNK
     Route: 048
  4. ACETAMINOPHEN [Concomitant]
     Indication: RESPIRATORY TRACT INFECTION

REACTIONS (1)
  - SKIN HAEMORRHAGE [None]
